FAERS Safety Report 20368035 (Version 8)
Quarter: 2022Q4

REPORT INFORMATION
  Report Type: Report from Study
  Country: JP (occurrence: JP)
  Receive Date: 20220124
  Receipt Date: 20221122
  Transmission Date: 20230113
  Serious: Yes (Hospitalization, Other)
  Sender: FDA-Public Use
  Company Number: JP-BAYER-2022A008140

PATIENT
  Age: 74 Year
  Sex: Male

DRUGS (14)
  1. EYLEA [Suspect]
     Active Substance: AFLIBERCEPT
     Indication: Glaucoma
     Dosage: 2MG, ONCE, RIGHT EYE, SOLTUION FOR INJECTION IN PRE-FILLED SYRINGE, 40 MG/ML
     Route: 031
     Dates: start: 20211217, end: 20211217
  2. XALATAN [Concomitant]
     Active Substance: LATANOPROST
     Indication: Glaucoma
     Dosage: BOTH EYES, ONCE A DAY,LEFT EYE CONTINUED,RIGHT EYE WITHDRAWAL
     Route: 047
  3. COSOPT [Concomitant]
     Active Substance: DORZOLAMIDE HYDROCHLORIDE\TIMOLOL MALEATE
     Indication: Glaucoma
     Dosage: BOTH EYES, TWICE A DAY,LEFT EYE CONTINUED,RIGHT EYE WITHDRAWAL
     Route: 047
  4. ALPHAGAN P [Concomitant]
     Active Substance: BRIMONIDINE TARTRATE
     Indication: Product used for unknown indication
     Dosage: BOTH EYES, TWICE A DAY,LEFT EYE CONTINUED,RIGHT EYE WITHDRAWAL
     Route: 031
  5. RIPASUDIL HYDROCHLORIDE DIHYDRATE [Concomitant]
     Active Substance: RIPASUDIL HYDROCHLORIDE DIHYDRATE
     Indication: Glaucoma
     Dosage: RIGHT EYE, TWICE A DAY
     Route: 047
     Dates: start: 20211217
  6. MOXIFLOXACIN [Concomitant]
     Active Substance: MOXIFLOXACIN
     Indication: Infection prophylaxis
     Dosage: AN APPROPRIATE AMOUNT WAS ADMINISTERED EACH TIME EYLEA WAS ADMINISTERED, RIGHT EYE
     Route: 047
  7. MOXIFLOXACIN [Concomitant]
     Active Substance: MOXIFLOXACIN
     Indication: Retinal vein occlusion
     Dosage: APPROPRIATE AMOUNT, RIGHT EYE
     Route: 047
     Dates: start: 20211219
  8. OFLOXACIN [Concomitant]
     Active Substance: OFLOXACIN
     Indication: Infection prophylaxis
     Dosage: AN APPROPRIATE AMOUNT WAS ADMINISTERED EACH TIME EYLEA WAS ADMINISTERED, RIGHT EYE
     Route: 047
  9. BENOXINATE HYDROCHLORIDE [Concomitant]
     Active Substance: BENOXINATE HYDROCHLORIDE
     Indication: Anaesthesia procedure
     Dosage: AN APPROPRIATE AMOUNT WAS ADMINISTERED EACH TIME EYLEA WAS ADMINISTERED, RIGHT EYE
     Route: 047
  10. DEXAMETHASONE [Concomitant]
     Active Substance: DEXAMETHASONE
     Indication: Prophylaxis
     Dosage: APPROPRIATE AMOUNT, RIGHT EYE
     Route: 047
     Dates: start: 20211219
  11. ATROPINE [Concomitant]
     Active Substance: ATROPINE
     Indication: Prophylaxis
     Dosage: APPROPRIATE AMOUNT, RIGHT EYE
     Route: 047
     Dates: start: 20211219, end: 20220102
  12. PA IODO [Concomitant]
     Indication: Infection prophylaxis
     Dosage: AN APPROPRIATE AMOUNT WAS ADMINISTERED EACH TIME EYLEA WAS ADMINISTERED, PERIOCULAR
     Route: 050
  13. UNSPECIFIED INGREDIENT [Concomitant]
     Active Substance: UNSPECIFIED INGREDIENT
     Indication: Product used for unknown indication
  14. XYLOCAINE [Concomitant]
     Active Substance: LIDOCAINE HYDROCHLORIDE
     Indication: Anaesthesia procedure
     Dosage: AN APPROPRIATE AMOUNT WAS ADMINISTERED EACH TIME EYLEA WAS ADMINISTERED, RIGHT EYE
     Route: 047

REACTIONS (6)
  - Aqueous humour leakage [Recovered/Resolved]
  - Choroidal detachment [Recovering/Resolving]
  - Blindness unilateral [Not Recovered/Not Resolved]
  - Intraocular pressure increased [Recovering/Resolving]
  - Device use issue [Unknown]
  - Corneal oedema [Recovering/Resolving]

NARRATIVE: CASE EVENT DATE: 20211218
